FAERS Safety Report 8415964-9 (Version None)
Quarter: 2012Q2

REPORT INFORMATION
  Report Type: 
  Country: None (occurrence: None)
  Receive Date: 20120606
  Receipt Date: 20120601
  Transmission Date: 20120825
  Serious: Yes (Death, Hospitalization, Other)
  Sender: FDA-Public Use
  Company Number: IN-PFIZER INC-2012133452

PATIENT
  Sex: Female

DRUGS (3)
  1. ZOLEDRONOC ACID [Concomitant]
  2. SHELCAL [Concomitant]
  3. SUTENT [Suspect]
     Indication: METASTATIC RENAL CELL CARCINOMA
     Route: 048

REACTIONS (6)
  - DEATH [None]
  - COMA [None]
  - HAEMOGLOBIN DECREASED [None]
  - MUSCULAR WEAKNESS [None]
  - ASTHENIA [None]
  - PAIN IN EXTREMITY [None]
